FAERS Safety Report 4699203-0 (Version None)
Quarter: 2005Q2

REPORT INFORMATION
  Report Type: 
  Country: None (occurrence: None)
  Receive Date: 20050624
  Receipt Date: 20050614
  Transmission Date: 20051028
  Serious: Yes (Hospitalization)
  Sender: FDA-Public Use
  Company Number: AU-MERCK-0506AUS00174

PATIENT
  Age: 53 Year
  Sex: Male

DRUGS (7)
  1. NOROXIN [Suspect]
     Indication: PROSTATE INFECTION
     Route: 048
     Dates: start: 20050610, end: 20050612
  2. PHENYTOIN [Suspect]
     Route: 065
  3. AMLODIPINE BESYLATE [Concomitant]
     Route: 065
  4. RAMIPRIL [Concomitant]
     Route: 065
  5. DIAZEPAM [Concomitant]
     Route: 065
  6. ACETAMINOPHEN [Concomitant]
     Route: 065
  7. CAFFEINE [Suspect]
     Route: 065

REACTIONS (11)
  - ARTHRALGIA [None]
  - DEJA VU [None]
  - DIARRHOEA [None]
  - DRUG INTERACTION [None]
  - FLIGHT OF IDEAS [None]
  - HALLUCINATION [None]
  - HEADACHE [None]
  - HYPOAESTHESIA [None]
  - MEMORY IMPAIRMENT [None]
  - PANIC ATTACK [None]
  - RASH [None]
